APPROVED DRUG PRODUCT: CYCLOBENZAPRINE HYDROCHLORIDE
Active Ingredient: CYCLOBENZAPRINE HYDROCHLORIDE
Strength: 10MG
Dosage Form/Route: TABLET;ORAL
Application: A074421 | Product #001
Applicant: PLIVA INC
Approved: Sep 29, 1995 | RLD: No | RS: No | Type: DISCN